FAERS Safety Report 7984317-X (Version None)
Quarter: 2011Q4

REPORT INFORMATION
  Report Type: 
  Country: None (occurrence: None)
  Receive Date: 20111214
  Receipt Date: 20111130
  Transmission Date: 20120403
  Serious: Yes (Other)
  Sender: FDA-Public Use
  Company Number: 1000025691

PATIENT
  Age: 61 Year
  Sex: Female

DRUGS (8)
  1. MEMANTINE HYDROCHLORIDE [Suspect]
     Indication: DEMENTIA ALZHEIMER'S TYPE
     Dosage: 20 MG (20 MG, 1 IN 1 D),
     Dates: start: 20110708, end: 20110802
  2. GORIN-SAN (AKEBIA STEM, ALISMA RHIZOME, GARDENIA FRUIT, JAPANESE ANGEL [Concomitant]
  3. MEMANTINE HYDROCHLORIDE [Suspect]
     Indication: DEMENTIA ALZHEIMER'S TYPE
     Dosage: 5 MG (5 MG, 1 IN 1 D); 10 MG (10 MG, 1 IN 1 D), 15 MG (15 MG, 1 IN 1 D),
     Dates: start: 20110609, end: 20110623
  4. AMLODIPINE [Concomitant]
  5. MAGMITT (MAGNESIUM OXIDE) [Concomitant]
  6. LIVALO [Concomitant]
  7. BLOPRESS (CANDESARTAN CILEXETIL) [Concomitant]
  8. GALANTAMINE HYDROBROMIDE [Concomitant]

REACTIONS (8)
  - HYPOPHAGIA [None]
  - BLOOD PRESSURE INCREASED [None]
  - BLOOD POTASSIUM DECREASED [None]
  - SOMNOLENCE [None]
  - ALANINE AMINOTRANSFERASE INCREASED [None]
  - HEART RATE DECREASED [None]
  - ZINC SULPHATE TURBIDITY INCREASED [None]
  - ABULIA [None]
